FAERS Safety Report 4838384-2 (Version None)
Quarter: 2005Q4

REPORT INFORMATION
  Report Type: 
  Country: None (occurrence: None)
  Receive Date: 20051123
  Receipt Date: 20051115
  Transmission Date: 20060501
  Serious: Yes (Disabling)
  Sender: FDA-Public Use
  Company Number: 2005156378

PATIENT
  Age: 85 Year
  Sex: Male

DRUGS (2)
  1. LIPITOR [Suspect]
     Indication: ILL-DEFINED DISORDER
     Dosage: 20 MG
  2. ARICEPT [Suspect]
     Indication: AMNESIA

REACTIONS (3)
  - AMNESIA [None]
  - BLINDNESS [None]
  - HEARING IMPAIRED [None]
